FAERS Safety Report 14548171 (Version 1)
Quarter: 2018Q1

REPORT INFORMATION
  Report Type: Report from Study
  Country: CO (occurrence: CO)
  Receive Date: 20180219
  Receipt Date: 20180219
  Transmission Date: 20180509
  Serious: Yes (Life-Threatening, Hospitalization)
  Sender: FDA-Public Use
  Company Number: PHHY2018CO027676

PATIENT
  Age: 69 Year
  Sex: Female
  Weight: 45 kg

DRUGS (1)
  1. ENTRESTO [Suspect]
     Active Substance: SACUBITRIL\VALSARTAN
     Indication: CARDIAC FAILURE
     Dosage: 50 MG, Q12H
     Route: 048
     Dates: start: 20171120, end: 20180214

REACTIONS (4)
  - Abdominal pain [Unknown]
  - Vomiting [Unknown]
  - Cardiac arrest [Unknown]
  - Chest pain [Unknown]

NARRATIVE: CASE EVENT DATE: 20180214
